FAERS Safety Report 4485026-4 (Version None)
Quarter: 2004Q3

REPORT INFORMATION
  Report Type: 
  Country: None (occurrence: None)
  Receive Date: 20040921
  Receipt Date: 20040218
  Transmission Date: 20050211
  Serious: Yes (Hospitalization)
  Sender: FDA-Public Use
  Company Number: 163-20785-04020535

PATIENT
  Age: 72 Year
  Sex: Female

DRUGS (2)
  1. THALOMID [Suspect]
     Indication: MULTIPLE MYELOMA
     Dosage: 50-100 MG, DAILY, ORAL
     Route: 048
     Dates: start: 20030514
  2. DECADRON [Concomitant]

REACTIONS (2)
  - ARTERIAL THROMBOSIS [None]
  - PAIN IN EXTREMITY [None]
